FAERS Safety Report 7401388-X (Version None)
Quarter: 2011Q2

REPORT INFORMATION
  Report Type: 
  Country: None (occurrence: None)
  Receive Date: 20110407
  Receipt Date: 20110331
  Transmission Date: 20111010
  Serious: Yes (Hospitalization, Disabling, Other)
  Sender: FDA-Public Use
  Company Number: US-MERCK-1012USA01896

PATIENT
  Age: 59 Year
  Sex: Female
  Weight: 68 kg

DRUGS (10)
  1. FOSAMAX [Suspect]
     Indication: OSTEOPOROSIS PROPHYLAXIS
     Route: 048
     Dates: start: 19960101, end: 20081215
  2. FOSAMAX [Suspect]
     Route: 048
     Dates: start: 19990510, end: 20000101
  3. VITAMINS (UNSPECIFIED) [Concomitant]
     Route: 065
  4. FOSAMAX [Suspect]
     Route: 048
     Dates: start: 20010323, end: 20060101
  5. FOSAMAX [Suspect]
     Indication: OSTEOPENIA
     Route: 048
     Dates: start: 19960101, end: 20081215
  6. FOSAMAX [Suspect]
     Route: 048
     Dates: start: 20010323, end: 20060101
  7. FOSAMAX PLUS D [Suspect]
     Route: 048
     Dates: start: 20060402, end: 20080101
  8. FOSAMAX [Suspect]
     Route: 048
     Dates: start: 19990510, end: 20000101
  9. VITAMIN D (UNSPECIFIED) [Concomitant]
     Route: 065
  10. VITAMIN E [Concomitant]
     Route: 065

REACTIONS (15)
  - CALYCEAL DIVERTICULUM [None]
  - FEMUR FRACTURE [None]
  - OSTEOPOROSIS [None]
  - STRESS FRACTURE [None]
  - EPICONDYLITIS [None]
  - ROTATOR CUFF SYNDROME [None]
  - NEPHROLITHIASIS [None]
  - PERIPHERAL VASCULAR DISORDER [None]
  - LOW TURNOVER OSTEOPATHY [None]
  - VASCULAR INSUFFICIENCY [None]
  - ANGIOPATHY [None]
  - HYPERCALCIURIA [None]
  - BACK DISORDER [None]
  - PAIN IN EXTREMITY [None]
  - IMPAIRED HEALING [None]
